FAERS Safety Report 23276106 (Version 1)
Quarter: 2023Q4

REPORT INFORMATION
  Report Type: Spontaneous
  Country: CN (occurrence: None)
  Receive Date: 20231208
  Receipt Date: 20231208
  Transmission Date: 20240110
  Serious: Yes (Other)
  Sender: FDA-Public Use
  Company Number: CN-ROCHE-3464884

PATIENT
  Age: 65 Year
  Sex: Female

DRUGS (9)
  1. POLATUZUMAB VEDOTIN [Suspect]
     Active Substance: POLATUZUMAB VEDOTIN
     Indication: Diffuse large B-cell lymphoma
     Dosage: DATE OF TREATMENT 11-MAY-2023, 01-JUN-2023, PR-CHP REGIMEN, D3
     Route: 065
     Dates: start: 20230418
  2. POLATUZUMAB VEDOTIN [Suspect]
     Active Substance: POLATUZUMAB VEDOTIN
     Dosage: 28-JUN-2023, P-CHP REGIMEN
     Route: 065
     Dates: start: 20230628
  3. POLATUZUMAB VEDOTIN [Suspect]
     Active Substance: POLATUZUMAB VEDOTIN
     Dosage: 26-JUL-2023, 16 AUG 2023, PR-CHP REGIMEN
     Route: 065
     Dates: start: 20230726
  4. RITUXIMAB [Suspect]
     Active Substance: RITUXIMAB
     Indication: Diffuse large B-cell lymphoma
     Dosage: 18-APR-2023, 11-MAY-2023, 01-JUN-2023, PR-CHP REGIMEN, D1
     Route: 065
     Dates: start: 20230418
  5. RITUXIMAB [Suspect]
     Active Substance: RITUXIMAB
     Dosage: 26-JUL-2023, 16 AUG 2023, PR-CHP REGIMEN
     Route: 065
     Dates: start: 20230726
  6. RITUXIMAB [Suspect]
     Active Substance: RITUXIMAB
     Dosage: MONOTHERAPY FOR TWO CYCLES
     Route: 065
  7. DEXAMETHASONE [Concomitant]
     Active Substance: DEXAMETHASONE
  8. CYCLOPHOSPHAMIDE [Concomitant]
     Active Substance: CYCLOPHOSPHAMIDE
  9. DOXORUBICIN [Concomitant]
     Active Substance: DOXORUBICIN

REACTIONS (5)
  - Mouth ulceration [Unknown]
  - Agranulocytosis [Unknown]
  - Pyrexia [Unknown]
  - Oral herpes [Unknown]
  - COVID-19 [Unknown]
